FAERS Safety Report 5166977-4 (Version None)
Quarter: 2006Q4

REPORT INFORMATION
  Report Type: 
  Country: None (occurrence: None)
  Receive Date: 20061129
  Receipt Date: 20061117
  Transmission Date: 20070319
  Serious: Yes (Hospitalization)
  Sender: FDA-Public Use
  Company Number: 2006142736

PATIENT

DRUGS (1)
  1. LYRICA [Suspect]
     Indication: EPILEPSY
     Dosage: 300 MG (1 IN 1 D), ORAL
     Route: 048

REACTIONS (2)
  - ASTHMA [None]
  - CONDITION AGGRAVATED [None]
